FAERS Safety Report 4575063-3 (Version None)
Quarter: 2005Q1

REPORT INFORMATION
  Report Type: 
  Country: None (occurrence: None)
  Receive Date: 20050208
  Receipt Date: 20050203
  Transmission Date: 20050727
  Serious: Yes (Other)
  Sender: FDA-Public Use
  Company Number: CA-GLAXOSMITHKLINE-A0543855A

PATIENT
  Age: 45 Year
  Sex: Male

DRUGS (4)
  1. ALBENDAZOLE [Suspect]
     Indication: NEUROCYSTICERCOSIS
     Dosage: 400MG TWICE PER DAY
     Route: 048
     Dates: start: 20041123, end: 20041201
  2. TEGRETOL [Concomitant]
     Indication: CONVULSION
     Dosage: 200MG THREE TIMES PER DAY
     Route: 048
     Dates: start: 20020101
  3. DEXAMETHASONE [Concomitant]
     Indication: CONVULSION
     Dosage: 4MG FOUR TIMES PER DAY
     Route: 048
     Dates: start: 20041122
  4. CLOBAZAM [Concomitant]
     Indication: CONVULSION
     Dosage: 10MG TWICE PER DAY
     Route: 048
     Dates: start: 20041122, end: 20041220

REACTIONS (1)
  - CONVULSION [None]
